FAERS Safety Report 6399310-0 (Version None)
Quarter: 2009Q4

REPORT INFORMATION
  Report Type: 
  Country: None (occurrence: None)
  Receive Date: 20091014
  Receipt Date: 20070620
  Transmission Date: 20100525
  Serious: Yes (Other)
  Sender: FDA-Public Use
  Company Number: US-ASTRAZENECA-2006UW12133

PATIENT
  Age: 37 Year
  Sex: Female
  Weight: 93 kg

DRUGS (31)
  1. SEROQUEL [Suspect]
     Indication: SCHIZOPHRENIA
     Dosage: 25 MG TO 900 MG
     Route: 048
     Dates: start: 20010302
  2. SEROQUEL [Suspect]
     Indication: DEPRESSION
     Dosage: 25 MG TO 900 MG
     Route: 048
     Dates: start: 20010302
  3. SEROQUEL [Suspect]
     Indication: BIPOLAR DISORDER
     Dosage: 25 MG TO 900 MG
     Route: 048
     Dates: start: 20010302
  4. SEROQUEL [Suspect]
     Indication: SLEEP DISORDER
     Dosage: 25 MG TO 900 MG
     Route: 048
     Dates: start: 20010302
  5. SEROQUEL [Suspect]
     Route: 048
     Dates: start: 20010301
  6. SEROQUEL [Suspect]
     Route: 048
     Dates: start: 20010301
  7. SEROQUEL [Suspect]
     Route: 048
     Dates: start: 20010301
  8. SEROQUEL [Suspect]
     Route: 048
     Dates: start: 20010301
  9. DEPAKOTE [Concomitant]
     Dates: start: 20000101
  10. PAXIL [Concomitant]
     Indication: PANIC DISORDER
     Dosage: 20 MG TO 75 MG
     Dates: start: 20010112
  11. PAXIL [Concomitant]
     Dates: start: 20010101
  12. EFFEXOR/EFFEXOR XR [Concomitant]
     Dates: start: 20011030
  13. EFFEXOR/EFFEXOR XR [Concomitant]
     Dates: start: 20010101
  14. ZYPREXA [Concomitant]
     Dosage: 10 MG TO 15 MG
     Dates: start: 20000822
  15. ZYPREXA [Concomitant]
     Dates: start: 20000101
  16. RISPERDAL [Concomitant]
     Dosage: 1 MG TO 2 MG
     Dates: start: 20001010
  17. RISPERDAL [Concomitant]
     Dates: start: 20010101
  18. GEODON [Concomitant]
     Dosage: 40 MG TO 160 MG
     Dates: start: 20030707, end: 20040101
  19. GEODON [Concomitant]
     Dates: start: 20030101
  20. ABILIFY [Concomitant]
     Dosage: 10 MG TO 20 MG
     Dates: start: 20040817, end: 20041104
  21. ABILIFY [Concomitant]
     Dates: start: 20040101
  22. AVANDAMET [Concomitant]
     Dosage: 1/500 MG, 2/200 MG
     Route: 048
     Dates: start: 20030925
  23. GLIPIZIDE [Concomitant]
     Dosage: 10 MG DISPENSED
     Dates: start: 20050726
  24. NORVASC [Concomitant]
     Dates: start: 20040914
  25. AMBIEN [Concomitant]
     Dosage: 10 MG DISPENSED
     Dates: start: 20040308
  26. TRAZODONE [Concomitant]
     Dosage: 150 MG TO 200 MG
     Dates: start: 20040622, end: 20041012
  27. TRILEPTAL [Concomitant]
     Dosage: 150 MG DISPENSED
     Dates: start: 20030620
  28. LORAZEPAM [Concomitant]
     Dosage: 0.5 MG DISPENSED
     Dates: start: 20010131
  29. FUROSEMIDE [Concomitant]
     Dosage: 20 MG DISPENSED
     Dates: start: 20010130
  30. VISTARIL CAP [Concomitant]
     Indication: ANXIETY
     Dosage: 25 MG TO 200 MG
     Dates: start: 20030311
  31. REMERON [Concomitant]
     Dates: start: 20030621

REACTIONS (3)
  - DIABETES MELLITUS [None]
  - DIABETIC NEPHROPATHY [None]
  - TYPE 2 DIABETES MELLITUS [None]
